FAERS Safety Report 5710922-7 (Version None)
Quarter: 2008Q2

REPORT INFORMATION
  Report Type: 
  Country: None (occurrence: None)
  Receive Date: 20080421
  Receipt Date: 20080409
  Transmission Date: 20081010
  Serious: Yes (Hospitalization)
  Sender: FDA-Public Use
  Company Number: -BAXTER-2008BH002781

PATIENT
  Age: 61 Year
  Sex: Female

DRUGS (9)
  1. DIANEAL [Suspect]
     Indication: PERITONEAL DIALYSIS
     Route: 033
     Dates: start: 20050922
  2. EXTRANEAL [Suspect]
     Indication: PERITONEAL DIALYSIS
     Route: 033
  3. ATENOLOL [Concomitant]
  4. FUROSEMIDE [Concomitant]
  5. ALFACALCIDOL [Concomitant]
  6. RENAGEL [Concomitant]
  7. SENNA [Concomitant]
  8. EPOGEN [Concomitant]
  9. SIMVASTATIN [Concomitant]

REACTIONS (2)
  - DEVICE LEAKAGE [None]
  - FUNGAL PERITONITIS [None]
